FAERS Safety Report 4284965-7 (Version None)
Quarter: 2004Q1

REPORT INFORMATION
  Report Type: 
  Country: None (occurrence: None)
  Receive Date: 20040202
  Receipt Date: 20040122
  Transmission Date: 20041129
  Serious: Yes (Death)
  Sender: FDA-Public Use
  Company Number: 2003183969US

PATIENT
  Age: 62 Year
  Sex: Female

DRUGS (1)
  1. BEXTRA [Suspect]
     Indication: PAIN IN EXTREMITY
     Dosage: 20 MG
     Route: 048
     Dates: start: 20031022, end: 20031024

REACTIONS (2)
  - DRUG LEVEL INCREASED [None]
  - MYOCARDIAL INFARCTION [None]
